FAERS Safety Report 7206406-X (Version None)
Quarter: 2010Q4

REPORT INFORMATION
  Report Type: 
  Country: None (occurrence: None)
  Receive Date: 20101229
  Receipt Date: 20101229
  Transmission Date: 20110411
  Serious: Yes (Hospitalization)
  Sender: FDA-Public Use
  Company Number: None

PATIENT
  Age: 40 Year
  Sex: Male

DRUGS (1)
  1. RIFAMPIN [Suspect]
     Indication: INFECTION
     Dosage: 300 MG BID PO
     Route: 048
     Dates: start: 20101020, end: 20101220

REACTIONS (3)
  - LEUKOPENIA [None]
  - POST PROCEDURAL COMPLICATION [None]
  - PYREXIA [None]
